FAERS Safety Report 9913230 (Version 1)
Quarter: 2014Q1

REPORT INFORMATION
  Report Type: Spontaneous
  Country: CH (occurrence: None)
  Receive Date: 20140214
  Receipt Date: 20140214
  Transmission Date: 20141002
  Serious: Yes (Life-Threatening)
  Sender: FDA-Public Use
  Company Number: 2014000042

PATIENT
  Age: 94 Year
  Sex: Female

DRUGS (8)
  1. TORASEM [Suspect]
     Indication: PRODUCT USED FOR UNKNOWN INDICATION
     Route: 048
  2. VI-DE 3 (COLECALCIFEROL) [Concomitant]
  3. BETAHISTINE HYDROCHLORIDE (BETAHISTINE HYDROCHLORIDE) [Concomitant]
  4. ESOMEPRAZOLE MAGNESIUM (ESOMEPRAZOLE MAGNESIUM) [Concomitant]
  5. LORAZEPAM (LORAZEPAM) [Concomitant]
  6. ACEON (PERINDOPRIL ERBUMINE) TABLET [Suspect]
     Indication: PRODUCT USED FOR UNKNOWN INDICATION
     Route: 048
  7. SEROQUEL [Suspect]
     Indication: RESTLESSNESS
     Route: 048
     Dates: end: 20140117
  8. HALOPERIDOL [Suspect]
     Indication: RESTLESSNESS
     Route: 048
     Dates: start: 20140117

REACTIONS (5)
  - Drug interaction [None]
  - Somnolence [None]
  - Hypotension [None]
  - Fall [None]
  - Off label use [None]
